FAERS Safety Report 10468697 (Version 1)
Quarter: 2014Q3

REPORT INFORMATION
  Report Type: Report from Study
  Country: US (occurrence: US)
  Receive Date: 20140922
  Receipt Date: 20140922
  Transmission Date: 20150326
  Serious: Yes (Other)
  Sender: FDA-Public Use
  Company Number: US-ALEXION-A200800805

PATIENT
  Age: 35 Year
  Sex: Male

DRUGS (6)
  1. SOLIRIS [Suspect]
     Active Substance: ECULIZUMAB
     Dosage: UNK, SINGLE
     Route: 042
     Dates: start: 20110315, end: 20110315
  2. SOLIRIS [Suspect]
     Active Substance: ECULIZUMAB
     Indication: PAROXYSMAL NOCTURNAL HAEMOGLOBINURIA
     Dosage: UNK, SINGLE
     Route: 042
     Dates: start: 20090401, end: 20090401
  3. SOLIRIS [Suspect]
     Active Substance: ECULIZUMAB
     Dosage: UNK, SINGLE
     Route: 042
     Dates: start: 20110304, end: 20110304
  4. SOLIRIS [Suspect]
     Active Substance: ECULIZUMAB
     Dosage: 900 MG, EVERY 10 DAYS, SINGLE
     Route: 042
     Dates: start: 20120313, end: 20120313
  5. SOLIRIS [Suspect]
     Active Substance: ECULIZUMAB
     Dosage: 900 MG, Q 10 DAYS
     Route: 042
     Dates: start: 20100910
  6. SOLIRIS [Suspect]
     Active Substance: ECULIZUMAB
     Dosage: UNK, EVERY 12 DAYS
     Route: 042

REACTIONS (12)
  - Platelet transfusion [Unknown]
  - Inappropriate schedule of drug administration [Unknown]
  - Bone marrow failure [Unknown]
  - Packed red blood cell transfusion [Not Recovered/Not Resolved]
  - Quality of life decreased [Unknown]
  - White blood cell count increased [Unknown]
  - Haemoglobin decreased [Unknown]
  - Abdominal pain [Unknown]
  - Platelet count decreased [Recovering/Resolving]
  - Haemoglobinuria [Unknown]
  - Nasopharyngitis [Recovering/Resolving]
  - Haemolysis [Unknown]

NARRATIVE: CASE EVENT DATE: 20120307
